FAERS Safety Report 10016790 (Version 1)
Quarter: 2014Q1

REPORT INFORMATION
  Report Type: Spontaneous
  Country: GR (occurrence: GR)
  Receive Date: 20140318
  Receipt Date: 20140318
  Transmission Date: 20141002
  Serious: Yes (Hospitalization)
  Sender: FDA-Public Use
  Company Number: PHHY2014GR029417

PATIENT
  Age: 44 Year
  Sex: Female

DRUGS (4)
  1. METHYLPREDNISOLONE [Suspect]
  2. ADALIMUMAB [Suspect]
     Indication: CROHN^S DISEASE
  3. MEROPENEM [Concomitant]
     Route: 042
  4. ENOXAPARIN [Concomitant]

REACTIONS (5)
  - Cerebral venous thrombosis [Recovered/Resolved]
  - Agitation [Recovered/Resolved]
  - Anxiety [Recovered/Resolved]
  - Suspiciousness [Recovered/Resolved]
  - Insomnia [Recovered/Resolved]
